FAERS Safety Report 5015245-X (Version None)
Quarter: 2006Q2

REPORT INFORMATION
  Report Type: 
  Country: None (occurrence: None)
  Receive Date: 20060425
  Receipt Date: 20060112
  Transmission Date: 20061013
  Serious: No
  Sender: FDA-Public Use
  Company Number: 2006-BP-00335BP

PATIENT
  Sex: Male

DRUGS (8)
  1. APTIVUS/RITONAVIR CAPSULES [Suspect]
     Indication: HIV INFECTION
     Dosage: SEE TEXT (SEE TEXT,TPV/R250/100MG X2)
     Dates: start: 20051226, end: 20060108
  2. ACYCLOVIR [Concomitant]
  3. BATRIM [Concomitant]
  4. HYDROCODONE BITARTRATE [Concomitant]
  5. BENADRYL [Concomitant]
  6. PRAVACHOL [Concomitant]
  7. DOXAZOSIN METHOLATE [Concomitant]
  8. ABACAVIR [Concomitant]

REACTIONS (1)
  - RASH GENERALISED [None]
